FAERS Safety Report 11874599 (Version 2)
Quarter: 2016Q1

REPORT INFORMATION
  Report Type: Report from Study
  Country: US (occurrence: US)
  Receive Date: 20151229
  Receipt Date: 20160215
  Transmission Date: 20160526
  Serious: Yes (Hospitalization)
  Sender: FDA-Public Use
  Company Number: PHEH2015US026918

PATIENT
  Sex: Female

DRUGS (1)
  1. GILENYA [Suspect]
     Active Substance: FINGOLIMOD HYDROCHLORIDE
     Indication: MULTIPLE SCLEROSIS
     Dosage: 0.5 MG, QD
     Route: 048
     Dates: start: 201105

REACTIONS (5)
  - Foot fracture [Unknown]
  - Fall [Unknown]
  - Patella fracture [Unknown]
  - Face injury [Unknown]
  - Corneal abrasion [Unknown]
